FAERS Safety Report 25371835 (Version 2)
Quarter: 2025Q2

REPORT INFORMATION
  Report Type: Spontaneous
  Country: CA (occurrence: CA)
  Receive Date: 20250529
  Receipt Date: 20250605
  Transmission Date: 20250716
  Serious: Yes (Other)
  Sender: ASTELLAS
  Company Number: CA-ASTELLAS-2025-AER-028403

PATIENT
  Age: 50 Year
  Sex: Male

DRUGS (3)
  1. GILTERITINIB [Suspect]
     Active Substance: GILTERITINIB
     Indication: Precursor T-lymphoblastic leukaemia acute
     Route: 065
  2. VENETOCLAX [Suspect]
     Active Substance: VENETOCLAX
     Indication: Precursor T-lymphoblastic leukaemia acute
     Route: 065
  3. AZACITIDINE [Suspect]
     Active Substance: AZACITIDINE

REACTIONS (3)
  - Thrombotic microangiopathy [Recovered/Resolved]
  - Off label use [Unknown]
  - Product use issue [Unknown]
